FAERS Safety Report 25255019 (Version 1)
Quarter: 2025Q2

REPORT INFORMATION
  Report Type: Spontaneous
  Country: US (occurrence: None)
  Receive Date: 20250423
  Receipt Date: 20250423
  Transmission Date: 20250717
  Serious: Yes (Other)
  Sender: FDA-CTU
  Company Number: None

PATIENT
  Age: 46 Year
  Sex: Female
  Weight: 60.75 kg

DRUGS (3)
  1. PHENYLPROPANOLAMINE HYDROCHLORIDE [Suspect]
     Active Substance: PHENYLPROPANOLAMINE HYDROCHLORIDE
     Indication: Incontinence
     Route: 050
     Dates: start: 20220201, end: 20220430
  2. XANAX [Concomitant]
     Active Substance: ALPRAZOLAM
  3. VITAMINS [Concomitant]
     Active Substance: VITAMINS

REACTIONS (3)
  - Galactorrhoea [None]
  - Breast cancer [None]
  - Accidental exposure to product [None]

NARRATIVE: CASE EVENT DATE: 20220427
